FAERS Safety Report 17565397 (Version 4)
Quarter: 2022Q2

REPORT INFORMATION
  Report Type: Spontaneous
  Country: US (occurrence: US)
  Receive Date: 20200320
  Receipt Date: 20220502
  Transmission Date: 20220721
  Serious: No
  Sender: FDA-Public Use
  Company Number: US-PFIZER INC-2018479178

PATIENT
  Age: 63 Year
  Sex: Female

DRUGS (4)
  1. LYRICA [Suspect]
     Active Substance: PREGABALIN
     Indication: Sciatica
     Dosage: 150 MG, TWICE DAILY
     Route: 048
     Dates: start: 20181113, end: 20191113
  2. LYRICA [Suspect]
     Active Substance: PREGABALIN
     Indication: Pain
     Dosage: 150 MG, 3X/DAY
     Route: 048
  3. LYRICA [Suspect]
     Active Substance: PREGABALIN
     Indication: Post laminectomy syndrome
  4. LYRICA [Suspect]
     Active Substance: PREGABALIN
     Indication: Lumbar radiculopathy

REACTIONS (2)
  - Headache [Unknown]
  - Off label use [Unknown]
